FAERS Safety Report 6740681-0 (Version None)
Quarter: 2010Q2

REPORT INFORMATION
  Report Type: 
  Country: None (occurrence: None)
  Receive Date: 20100525
  Receipt Date: 20100519
  Transmission Date: 20101027
  Serious: Yes (Hospitalization, Other)
  Sender: FDA-Public Use
  Company Number: US-GENENTECH-299969

PATIENT
  Sex: Male
  Weight: 82.313 kg

DRUGS (3)
  1. RITUXAN [Suspect]
     Indication: B-CELL LYMPHOMA
     Dosage: 754 MG, Q3M
     Route: 042
     Dates: start: 20100115, end: 20100518
  2. COUMADIN [Concomitant]
     Indication: DRUG USE FOR UNKNOWN INDICATION
  3. SYNTHROID [Concomitant]
     Indication: DRUG USE FOR UNKNOWN INDICATION

REACTIONS (3)
  - LEUKOCYTOCLASTIC VASCULITIS [None]
  - PYREXIA [None]
  - RASH [None]
